FAERS Safety Report 7921802 (Version 2)
Quarter: 2012Q4

REPORT INFORMATION
  Report Type: 
  Country: US (occurrence: US)
  Receive Date: 20110429
  Receipt Date: 20121129
  Transmission Date: 20130627
  Serious: No
  Sender: FDA-Public Use
  Company Number: US-ASTRAZENECA-2010SE54399

PATIENT
  Age: 73 Year
  Sex: Male

DRUGS (17)
  1. ATACAND [Suspect]
     Route: 048
  2. NEXIUM [Suspect]
     Indication: GASTROOESOPHAGEAL REFLUX DISEASE
     Route: 048
     Dates: start: 20101111
  3. FUROSEMIDE [Concomitant]
  4. COREG [Concomitant]
  5. PROBENECID [Concomitant]
  6. POTASSIUM CHLORIDE [Concomitant]
  7. VITAMIN E [Concomitant]
  8. TRIPLE OMEGA [Concomitant]
  9. WARFARIN [Concomitant]
  10. IRON [Concomitant]
  11. HAWTHORN BERRY [Concomitant]
  12. CINNAMON BARK [Concomitant]
  13. FISH OIL [Concomitant]
  14. FLUTICASONE NASAL SPRAY [Concomitant]
  15. NIASPAN [Concomitant]
  16. PRAVASTATIN [Concomitant]
  17. MELATONIN [Concomitant]

REACTIONS (3)
  - Productive cough [Unknown]
  - Increased upper airway secretion [Unknown]
  - Ear discomfort [Unknown]
